FAERS Safety Report 24969152 (Version 1)
Quarter: 2025Q1

REPORT INFORMATION
  Report Type: Spontaneous
  Country: US (occurrence: US)
  Receive Date: 20250214
  Receipt Date: 20250214
  Transmission Date: 20250409
  Serious: No
  Sender: AMNEAL
  Company Number: US-AMNEAL PHARMACEUTICALS-2024-AMRX-00931

PATIENT
  Sex: Female

DRUGS (2)
  1. RYTARY [Suspect]
     Active Substance: CARBIDOPA\LEVODOPA
     Indication: Product used for unknown indication
     Route: 048
  2. RYTARY [Suspect]
     Active Substance: CARBIDOPA\LEVODOPA
     Dosage: 48.75/195 MG, 3 CAPSULES, 4 /DAY (8AM,12PM,4PM AND 8PM)
     Route: 048
     Dates: start: 20240314

REACTIONS (4)
  - Sleep disorder [Unknown]
  - Brain fog [Unknown]
  - Blood pressure decreased [Unknown]
  - Dizziness [Unknown]
